FAERS Safety Report 16617232 (Version 1)
Quarter: 2019Q3

REPORT INFORMATION
  Report Type: Spontaneous
  Country: DE (occurrence: DE)
  Receive Date: 20190723
  Receipt Date: 20190723
  Transmission Date: 20191004
  Serious: Yes (Life-Threatening, Hospitalization, Other)
  Sender: FDA-Public Use
  Company Number: DE-ASTRAZENECA-2019SF03433

PATIENT
  Age: 85 Year
  Sex: Male

DRUGS (2)
  1. MELPERONE [Suspect]
     Active Substance: MELPERONE
     Route: 065
  2. QUETIAPINE. [Suspect]
     Active Substance: QUETIAPINE
     Route: 048

REACTIONS (8)
  - Abdominal pain upper [Unknown]
  - Somnolence [Recovered/Resolved]
  - Postoperative delirium [Unknown]
  - Cognitive disorder [Recovered/Resolved]
  - Pneumonia [Unknown]
  - Ileus [Unknown]
  - Acute abdomen [Unknown]
  - Respiratory failure [Unknown]
